FAERS Safety Report 24683728 (Version 2)
Quarter: 2024Q4

REPORT INFORMATION
  Report Type: Spontaneous
  Country: US (occurrence: US)
  Receive Date: 20241202
  Receipt Date: 20241230
  Transmission Date: 20250115
  Serious: Yes (Other)
  Sender: BRISTOL-MYERS SQUIBB COMPANY
  Company Number: US-BRISTOL-MYERS SQUIBB COMPANY-2024-185097

PATIENT
  Age: 67 Year
  Sex: Female
  Weight: 74.84 kg

DRUGS (1)
  1. REVLIMID [Suspect]
     Active Substance: LENALIDOMIDE
     Indication: Plasma cell myeloma
     Dosage: FREQUENCY: DAILY FOR 21 DAYS ON, 7 OFF
     Route: 048
     Dates: start: 20241101

REACTIONS (4)
  - Pneumonia [Recovering/Resolving]
  - Fatigue [Recovering/Resolving]
  - Weight increased [Recovering/Resolving]
  - Peripheral swelling [Recovering/Resolving]

NARRATIVE: CASE EVENT DATE: 20241101
